APPROVED DRUG PRODUCT: RIZATRIPTAN BENZOATE
Active Ingredient: RIZATRIPTAN BENZOATE
Strength: EQ 10MG BASE
Dosage Form/Route: TABLET, ORALLY DISINTEGRATING;ORAL
Application: A204722 | Product #002 | TE Code: AB
Applicant: PANACEA BIOTEC PHARMA LTD
Approved: Jan 11, 2017 | RLD: No | RS: No | Type: RX